FAERS Safety Report 5809608-X (Version None)
Quarter: 2008Q3

REPORT INFORMATION
  Report Type: 
  Country: None (occurrence: None)
  Receive Date: 20080715
  Receipt Date: 20080703
  Transmission Date: 20090109
  Serious: Yes (Disabling)
  Sender: FDA-Public Use
  Company Number: CH-ROCHE-480124

PATIENT
  Sex: Female

DRUGS (3)
  1. BONIVA [Suspect]
     Indication: OSTEOPOROSIS
     Dosage: FORM REPORTED AS FILM COATED TABLET.
     Route: 048
     Dates: start: 20061016, end: 20061216
  2. MEDIAVEN [Concomitant]
     Dosage: FORM REPORTED AS FILM COATED TABLET.
     Route: 048
  3. CALCIMAGON-D3 [Concomitant]
     Indication: OSTEOPOROSIS

REACTIONS (2)
  - INFLUENZA LIKE ILLNESS [None]
  - LICHEN PLANUS [None]
